FAERS Safety Report 4927862-3 (Version None)
Quarter: 2006Q1

REPORT INFORMATION
  Report Type: 
  Country: None (occurrence: None)
  Receive Date: 20060228
  Receipt Date: 20060224
  Transmission Date: 20060701
  Serious: Yes (Hospitalization)
  Sender: FDA-Public Use
  Company Number: US-GLAXOSMITHKLINE-A0595116A

PATIENT
  Age: 71 Year
  Sex: Female

DRUGS (8)
  1. ADVAIR DISKUS 100/50 [Suspect]
     Indication: ASTHMA
     Dosage: 1SPR TWICE PER DAY
     Route: 055
     Dates: start: 20000101, end: 20051001
  2. LOTENSIN [Concomitant]
  3. ATENOLOL [Concomitant]
  4. ESTRACE [Concomitant]
  5. CELEBREX [Concomitant]
  6. MECLIZINE [Concomitant]
  7. LIPITOR [Concomitant]
  8. VESICARE [Concomitant]

REACTIONS (4)
  - CHRONIC SINUSITIS [None]
  - DISEASE RECURRENCE [None]
  - GLOSSODYNIA [None]
  - STAPHYLOCOCCAL INFECTION [None]
